FAERS Safety Report 23633623 (Version 2)
Quarter: 2024Q1

REPORT INFORMATION
  Report Type: Spontaneous
  Country: US (occurrence: US)
  Receive Date: 20240314
  Receipt Date: 20240327
  Transmission Date: 20240410
  Serious: No
  Sender: FDA-Public Use
  Company Number: US-ABBVIE-5669719

PATIENT
  Sex: Female

DRUGS (4)
  1. RINVOQ [Suspect]
     Active Substance: UPADACITINIB
     Indication: Product used for unknown indication
     Route: 048
  2. RINVOQ [Suspect]
     Active Substance: UPADACITINIB
     Indication: Product used for unknown indication
     Route: 048
  3. solpadeine [Concomitant]
     Indication: Product used for unknown indication
     Route: 048
  4. PINAVERIUM BROMIDE [Concomitant]
     Active Substance: PINAVERIUM BROMIDE
     Indication: Product used for unknown indication
     Route: 065
     Dates: start: 202403

REACTIONS (10)
  - Terminal ileitis [Unknown]
  - Nausea [Unknown]
  - Constipation [Unknown]
  - Abdominal pain [Unknown]
  - Proctalgia [Unknown]
  - Rectal tenesmus [Unknown]
  - Headache [Unknown]
  - Proctitis [Not Recovered/Not Resolved]
  - Diarrhoea [Unknown]
  - Dizziness [Unknown]

NARRATIVE: CASE EVENT DATE: 20240301
